FAERS Safety Report 4820768-X (Version None)
Quarter: 2005Q4

REPORT INFORMATION
  Report Type: 
  Country: None (occurrence: None)
  Receive Date: 20051103
  Receipt Date: 20051103
  Transmission Date: 20060501
  Serious: Yes (Hospitalization)
  Sender: FDA-Public Use
  Company Number: None

PATIENT
  Weight: 92.0802 kg

DRUGS (8)
  1. BENICAR [Suspect]
     Indication: FATIGUE
     Dosage: 80 MG  DAILY  PO
     Route: 048
  2. BENICAR [Suspect]
     Indication: FIBROMYALGIA
     Dosage: 80 MG  DAILY  PO
     Route: 048
  3. BENICAR [Suspect]
     Indication: HEADACHE
     Dosage: 80 MG  DAILY  PO
     Route: 048
  4. MORPHINE ER [Concomitant]
  5. NEURONTIN [Concomitant]
  6. FLUOXETINE [Concomitant]
  7. LEVOXYL [Concomitant]
  8. RANITIDINE [Concomitant]

REACTIONS (3)
  - COGNITIVE DISORDER [None]
  - LOSS OF CONSCIOUSNESS [None]
  - SOMNOLENCE [None]
